FAERS Safety Report 7800964-X (Version None)
Quarter: 2011Q4

REPORT INFORMATION
  Report Type: 
  Country: None (occurrence: None)
  Receive Date: 20111007
  Receipt Date: 20110928
  Transmission Date: 20120403
  Serious: Yes (Other)
  Sender: FDA-Public Use
  Company Number: US-BRISTOL-MYERS SQUIBB COMPANY-15476567

PATIENT
  Age: 84 Year
  Sex: Female

DRUGS (1)
  1. COUMADIN [Suspect]
     Indication: DEEP VEIN THROMBOSIS
     Dosage: 3MG FOR 4 DAYS; 1.5MG FOR 3 DAYS
     Route: 048
     Dates: start: 19630101

REACTIONS (2)
  - THROMBOSIS [None]
  - PREGNANCY [None]
